FAERS Safety Report 6789288-X (Version None)
Quarter: 2010Q2

REPORT INFORMATION
  Report Type: 
  Country: None (occurrence: None)
  Receive Date: 20100623
  Receipt Date: 20090610
  Transmission Date: 20101027
  Serious: No
  Sender: FDA-Public Use
  Company Number: US-PFIZER INC-2008028520

PATIENT
  Sex: Male

DRUGS (4)
  1. PROCARDIA [Suspect]
     Dosage: 90 MG, 1X/DAY
     Dates: start: 20071001
  2. COZAAR [Concomitant]
  3. PRAVACHOL [Concomitant]
  4. COREG [Concomitant]

REACTIONS (1)
  - FAECES DISCOLOURED [None]
